FAERS Safety Report 5534064-9 (Version None)
Quarter: 2007Q4

REPORT INFORMATION
  Report Type: 
  Country: None (occurrence: None)
  Receive Date: 20071129
  Receipt Date: 20071129
  Transmission Date: 20080405
  Serious: Yes (Hospitalization)
  Sender: FDA-Public Use
  Company Number: None

PATIENT
  Sex: Female
  Weight: 193.05 kg

DRUGS (6)
  1. CARBOPLATIN [Suspect]
     Dosage: 647 MG
  2. TAXOL [Suspect]
     Dosage: 350 MG
  3. ALBUTEROL [Concomitant]
  4. CRESTOR [Concomitant]
  5. LASIX [Concomitant]
  6. LOTREL [Concomitant]

REACTIONS (1)
  - DEEP VEIN THROMBOSIS [None]
